FAERS Safety Report 4360353-X (Version None)
Quarter: 2004Q2

REPORT INFORMATION
  Report Type: 
  Country: None (occurrence: None)
  Receive Date: 20040517
  Receipt Date: 20031028
  Transmission Date: 20050107
  Serious: Yes (Death)
  Sender: FDA-Public Use
  Company Number: 6475

PATIENT
  Age: 57 Year
  Sex: Female

DRUGS (4)
  1. ADRIAMYCIN PFS [Suspect]
     Indication: SMALL CELL LUNG CANCER STAGE UNSPECIFIED
     Dosage: 25 MG/M2 ONCE IV
     Route: 042
  2. CISPLATIN [Suspect]
     Indication: SMALL CELL LUNG CANCER STAGE UNSPECIFIED
     Dosage: 120 MG ONCE IV
     Route: 042
  3. ETOPOSIDE [Suspect]
     Indication: SMALL CELL LUNG CANCER STAGE UNSPECIFIED
     Dosage: 120 MG/M2 ONCE IV
     Route: 042
  4. VINCRISTINE [Suspect]
     Indication: SMALL CELL LUNG CANCER STAGE UNSPECIFIED
     Dosage: 2 MG ONCE IV
     Route: 042

REACTIONS (13)
  - AZOTAEMIA [None]
  - BLOOD CREATININE INCREASED [None]
  - BLOOD LACTATE DEHYDROGENASE INCREASED [None]
  - CARDIAC ARREST [None]
  - HYPERKALAEMIA [None]
  - HYPOCALCAEMIA [None]
  - METASTASES TO ADRENALS [None]
  - METASTASES TO BONE MARROW [None]
  - METASTASES TO KIDNEY [None]
  - METASTASES TO LYMPH NODES [None]
  - METASTASES TO THYROID [None]
  - RESPIRATORY DISTRESS [None]
  - TUMOUR LYSIS SYNDROME [None]
